FAERS Safety Report 9567796 (Version 2)
Quarter: 2013Q3

REPORT INFORMATION
  Report Type: Spontaneous
  Country: US (occurrence: US)
  Receive Date: 20130930
  Receipt Date: 20130930
  Transmission Date: 20140515
  Serious: No
  Sender: FDA-Public Use
  Company Number: US-AMGEN-USASP2013040733

PATIENT
  Age: 52 Year
  Sex: Male
  Weight: 63.3 kg

DRUGS (1)
  1. ENBREL [Suspect]
     Indication: PSORIASIS
     Dosage: UNK MG, 2 TIMES/WK
     Route: 058
     Dates: start: 20130115

REACTIONS (1)
  - Skin plaque [Recovering/Resolving]
